FAERS Safety Report 7470301-1 (Version None)
Quarter: 2011Q2

REPORT INFORMATION
  Report Type: 
  Country: None (occurrence: None)
  Receive Date: 20110510
  Receipt Date: 20110503
  Transmission Date: 20111010
  Serious: Yes (Death, Other)
  Sender: FDA-Public Use
  Company Number: US-GENZYME-THYM-1002448

PATIENT
  Age: 6 Month
  Sex: Female

DRUGS (3)
  1. BUSULFAN [Concomitant]
     Indication: BONE MARROW CONDITIONING REGIMEN
     Route: 065
  2. THYMOGLOBULIN [Suspect]
     Indication: BONE MARROW CONDITIONING REGIMEN
     Route: 042
  3. CYCLOPHOSPHAMIDE [Concomitant]
     Indication: BONE MARROW CONDITIONING REGIMEN
     Route: 065

REACTIONS (5)
  - GRAFT DYSFUNCTION [None]
  - HEPATIC ARTERY THROMBOSIS [None]
  - ACUTE HEPATIC FAILURE [None]
  - VENOOCCLUSIVE DISEASE [None]
  - THROMBOSIS MESENTERIC VESSEL [None]
